FAERS Safety Report 17559726 (Version 1)
Quarter: 2020Q1

REPORT INFORMATION
  Report Type: Spontaneous
  Country: US (occurrence: US)
  Receive Date: 20200319
  Receipt Date: 20200319
  Transmission Date: 20200409
  Serious: No
  Sender: FDA-Public Use
  Company Number: US-SA-2020SA070081

PATIENT
  Age: 58 Year
  Sex: Male

DRUGS (6)
  1. PROVENTIL HFA [Concomitant]
     Active Substance: ALBUTEROL SULFATE
  2. CIALIS [Concomitant]
     Active Substance: TADALAFIL
  3. ADVAIR HFA [Concomitant]
     Active Substance: FLUTICASONE PROPIONATE\SALMETEROL XINAFOATE
  4. DUPIXENT [Suspect]
     Active Substance: DUPILUMAB
     Indication: NASAL POLYPS
     Dosage: 300 MG, QOW
     Route: 058
     Dates: start: 202001
  5. AVEED [Concomitant]
     Active Substance: TESTOSTERONE UNDECANOATE
  6. DYMISTA [Concomitant]
     Active Substance: AZELASTINE HYDROCHLORIDE\FLUTICASONE PROPIONATE

REACTIONS (4)
  - Unevaluable event [Unknown]
  - Cough [Unknown]
  - Wheezing [Unknown]
  - Productive cough [Unknown]

NARRATIVE: CASE EVENT DATE: 2020
